FAERS Safety Report 8542529-0 (Version None)
Quarter: 2012Q3

REPORT INFORMATION
  Report Type: 
  Country: None (occurrence: None)
  Receive Date: 20120726
  Receipt Date: 20120719
  Transmission Date: 20120928
  Serious: Yes (Death, Congenital Anomaly)
  Sender: FDA-Public Use
  Company Number: US-FRI-1000037341

PATIENT
  Sex: Male

DRUGS (1)
  1. CELEXA [Suspect]
     Route: 064

REACTIONS (5)
  - RESPIRATORY DISTRESS [None]
  - CLEFT LIP [None]
  - CONGENITAL ANOMALY [None]
  - CLEFT PALATE [None]
  - SPINA BIFIDA [None]
